FAERS Safety Report 17082046 (Version 1)
Quarter: 2019Q4

REPORT INFORMATION
  Report Type: Spontaneous
  Country: US (occurrence: US)
  Receive Date: 20191127
  Receipt Date: 20191127
  Transmission Date: 20200122
  Serious: Yes (Other)
  Sender: FDA-Public Use
  Company Number: US-MYLANLABS-2019M1115053

PATIENT
  Age: 2 Decade
  Sex: Female

DRUGS (14)
  1. ARIPIPRAZOLE. [Suspect]
     Active Substance: ARIPIPRAZOLE
     Dosage: AT BEDTIME
     Route: 065
  2. SERTRALINE [Suspect]
     Active Substance: SERTRALINE HYDROCHLORIDE
     Indication: DISRUPTIVE MOOD DYSREGULATION DISORDER
     Dosage: UNK
     Route: 065
  3. BUSPIRONE [Concomitant]
     Active Substance: BUSPIRONE HYDROCHLORIDE
     Indication: DISRUPTIVE MOOD DYSREGULATION DISORDER
     Dosage: THREE TIMES A DAY
     Route: 065
  4. GUANFACINE. [Concomitant]
     Active Substance: GUANFACINE
     Indication: DISRUPTIVE MOOD DYSREGULATION DISORDER
     Dosage: UNK
     Route: 065
  5. HYDROXYZINE [Concomitant]
     Active Substance: HYDROXYZINE HYDROCHLORIDE
     Indication: DISRUPTIVE MOOD DYSREGULATION DISORDER
     Dosage: UNK
     Route: 065
  6. CLONIDINE. [Concomitant]
     Active Substance: CLONIDINE
     Indication: DISRUPTIVE MOOD DYSREGULATION DISORDER
     Dosage: UNK
     Route: 065
  7. CLONAZEPAM. [Concomitant]
     Active Substance: CLONAZEPAM
     Indication: DISRUPTIVE MOOD DYSREGULATION DISORDER
     Dosage: UNK
     Route: 065
  8. CITALOPRAM [Suspect]
     Active Substance: CITALOPRAM HYDROBROMIDE
     Indication: DISRUPTIVE MOOD DYSREGULATION DISORDER
     Dosage: UNK
     Route: 065
  9. MELATONIN [Concomitant]
     Active Substance: MELATONIN
     Indication: DISRUPTIVE MOOD DYSREGULATION DISORDER
     Dosage: 3 MILLIGRAM, QD
     Route: 065
  10. CARBAMAZEPINE. [Concomitant]
     Active Substance: CARBAMAZEPINE
     Indication: DISRUPTIVE MOOD DYSREGULATION DISORDER
     Dosage: UNK
     Route: 065
  11. ARIPIPRAZOLE. [Suspect]
     Active Substance: ARIPIPRAZOLE
     Indication: DISRUPTIVE MOOD DYSREGULATION DISORDER
     Dosage: AT BEDTIME
     Route: 065
  12. PRAZOSIN. [Concomitant]
     Active Substance: PRAZOSIN
     Indication: DISRUPTIVE MOOD DYSREGULATION DISORDER
     Dosage: THREE TIMES A DAY
     Route: 065
  13. RISPERIDONE. [Suspect]
     Active Substance: RISPERIDONE
     Indication: DISRUPTIVE MOOD DYSREGULATION DISORDER
     Dosage: UNK
     Route: 065
  14. LITHIUM. [Concomitant]
     Active Substance: LITHIUM
     Indication: DISRUPTIVE MOOD DYSREGULATION DISORDER
     Dosage: UNK
     Route: 065

REACTIONS (3)
  - Irritability [Unknown]
  - Activation syndrome [Unknown]
  - Weight increased [Unknown]
